FAERS Safety Report 7105981-3 (Version None)
Quarter: 2010Q4

REPORT INFORMATION
  Report Type: 
  Country: None (occurrence: None)
  Receive Date: 20101116
  Receipt Date: 20101108
  Transmission Date: 20110411
  Serious: Yes (Hospitalization)
  Sender: FDA-Public Use
  Company Number: JP-BAYER-201015258BYL

PATIENT
  Age: 65 Year
  Sex: Male
  Weight: 60 kg

DRUGS (5)
  1. NEXAVAR [Suspect]
     Indication: RENAL CANCER
     Dosage: TOTAL DAILY DOSE: 800 MG  UNIT DOSE: 200 MG
     Route: 048
     Dates: start: 20100901, end: 20101020
  2. GASTROM [Concomitant]
     Dosage: UNIT DOSE: 1.5 G
     Route: 048
     Dates: start: 20100901
  3. TAMSULOSIN HCL [Concomitant]
     Dosage: UNIT DOSE: 0.2 MG
     Route: 048
     Dates: start: 20100324
  4. EVIPROSTAT [Concomitant]
     Route: 048
     Dates: start: 20100324
  5. SUMIFERON DS [Concomitant]
     Route: 058
     Dates: start: 20091225, end: 20100901

REACTIONS (1)
  - ACUTE HEPATIC FAILURE [None]
